FAERS Safety Report 15196439 (Version 1)
Quarter: 2018Q3

REPORT INFORMATION
  Report Type: Spontaneous
  Country: US (occurrence: US)
  Receive Date: 20180626
  Receipt Date: 20180626
  Transmission Date: 20181010
  Serious: Yes (Hospitalization)
  Sender: FDA-Public Use
  Company Number: None

PATIENT
  Sex: Male

DRUGS (1)
  1. ENBREL [Suspect]
     Active Substance: ETANERCEPT
     Indication: RHEUMATOID ARTHRITIS
     Route: 058
     Dates: start: 20170127

REACTIONS (7)
  - Arthralgia [None]
  - Pain in extremity [None]
  - Nerve injury [None]
  - Cardiovascular disorder [None]
  - Back disorder [None]
  - Condition aggravated [None]
  - Drug dose omission [None]
